FAERS Safety Report 10528029 (Version 2)
Quarter: 2014Q4

REPORT INFORMATION
  Report Type: Spontaneous
  Country: IT (occurrence: IT)
  Receive Date: 20141020
  Receipt Date: 20141021
  Transmission Date: 20150528
  Serious: Yes (Other)
  Sender: FDA-Public Use
  Company Number: IT-TEVA-514878ISR

PATIENT
  Age: 50 Year
  Sex: Female

DRUGS (5)
  1. TRIMETON [Concomitant]
     Active Substance: CHLORPHENIRAMINE MALEATE
     Dosage: 10 MILLIGRAM DAILY;
     Route: 042
     Dates: start: 20141001, end: 20141001
  2. CARBOPLATINO TEVA [Suspect]
     Active Substance: CARBOPLATIN
     Dosage: 215 MILLIGRAM DAILY;
     Route: 041
     Dates: start: 20141001, end: 20141001
  3. PACLITAXEL KABI [Concomitant]
     Active Substance: PACLITAXEL
     Indication: BREAST CANCER
     Dosage: 130 MILLIGRAM DAILY;
     Route: 041
     Dates: start: 20141001, end: 20141001
  4. ONDANSETRONE HIKMA [Concomitant]
     Active Substance: ONDANSETRON
     Dosage: 8 MILLIGRAM DAILY;
     Route: 042
     Dates: start: 20141001, end: 20141001
  5. ZANTAC [Concomitant]
     Active Substance: RANITIDINE HYDROCHLORIDE
     Dosage: 50 MILLIGRAM DAILY;
     Route: 042
     Dates: start: 20141001, end: 20141001

REACTIONS (4)
  - Dyspnoea [Recovered/Resolved]
  - Paraesthesia [Recovered/Resolved]
  - Tremor [Recovered/Resolved]
  - Chest pain [Recovered/Resolved]

NARRATIVE: CASE EVENT DATE: 20141001
